FAERS Safety Report 21007050 (Version 1)
Quarter: 2022Q2

REPORT INFORMATION
  Report Type: Spontaneous
  Country: US (occurrence: US)
  Receive Date: 20220625
  Receipt Date: 20220625
  Transmission Date: 20220721
  Serious: Yes (Death, Hospitalization, Other)
  Sender: FDA-Public Use
  Company Number: US-Accord-267038

PATIENT
  Age: 61 Year
  Sex: Male

DRUGS (3)
  1. TACROLIMUS [Suspect]
     Active Substance: TACROLIMUS
     Indication: Immunosuppression
  2. PREDNISONE [Suspect]
     Active Substance: PREDNISONE
     Indication: Immunosuppression
  3. SIROLIMUS [Suspect]
     Active Substance: SIROLIMUS
     Indication: Immunosuppression

REACTIONS (6)
  - Smooth muscle cell neoplasm [Unknown]
  - Sepsis [Fatal]
  - Epstein-Barr virus infection [Unknown]
  - Streptococcal bacteraemia [Fatal]
  - Acute kidney injury [Unknown]
  - Lymphopenia [Unknown]
